FAERS Safety Report 8364734-9 (Version None)
Quarter: 2012Q2

REPORT INFORMATION
  Report Type: 
  Country: None (occurrence: None)
  Receive Date: 20120516
  Receipt Date: 20120511
  Transmission Date: 20120825
  Serious: Yes (Other)
  Sender: FDA-Public Use
  Company Number: CA-AMGEN-CANSP2012026571

PATIENT
  Age: 42 Year
  Sex: Female

DRUGS (2)
  1. XGEVA [Suspect]
     Indication: METASTASES TO BONE
     Dosage: 120 G, Q4WK
     Route: 058
     Dates: start: 20120103
  2. EXEMESTANE [Concomitant]
     Indication: BREAST CANCER
     Dosage: UNK UNK, QD
     Route: 048
     Dates: start: 20120103

REACTIONS (3)
  - OPHTHALMOPLEGIA [None]
  - DIPLOPIA [None]
  - TRANSIENT ISCHAEMIC ATTACK [None]
